FAERS Safety Report 16751180 (Version 3)
Quarter: 2019Q3

REPORT INFORMATION
  Report Type: Spontaneous
  Country: IN (occurrence: IN)
  Receive Date: 20190828
  Receipt Date: 20190926
  Transmission Date: 20191005
  Serious: Yes (Other)
  Sender: FDA-Public Use
  Company Number: IN-B.I. PHARMACEUTICALS,INC./RIDGEFIELD-2019-BI-034619

PATIENT
  Age: 59 Year

DRUGS (2)
  1. CYENDIV [Suspect]
     Active Substance: NINTEDANIB
     Indication: IDIOPATHIC PULMONARY FIBROSIS
     Route: 065
     Dates: start: 20190617, end: 20190821
  2. CYENDIV [Suspect]
     Active Substance: NINTEDANIB
     Route: 065
     Dates: start: 20190827

REACTIONS (6)
  - Erythema [Unknown]
  - Disease progression [Unknown]
  - Pruritus generalised [Unknown]
  - Dermatitis psoriasiform [Not Recovered/Not Resolved]
  - Antinuclear antibody increased [Not Recovered/Not Resolved]
  - Burning sensation [Unknown]

NARRATIVE: CASE EVENT DATE: 20190701
